FAERS Safety Report 8777814 (Version 1)
Quarter: 2012Q4

REPORT INFORMATION
  Report Type: 
  Country: AR (occurrence: AR)
  Receive Date: 20120912
  Receipt Date: 20120912
  Transmission Date: 20130627
  Serious: Yes (Death)
  Sender: FDA-Public Use
  Company Number: PHHY2012AR078922

PATIENT

DRUGS (1)
  1. RASILEZ D [Suspect]

REACTIONS (1)
  - Death [Fatal]
